FAERS Safety Report 8801975 (Version 1)
Quarter: 2012Q4

REPORT INFORMATION
  Report Type: 
  Country: CL (occurrence: CL)
  Receive Date: 20120921
  Receipt Date: 20120921
  Transmission Date: 20130627
  Serious: Yes (Other)
  Sender: FDA-Public Use
  Company Number: CL-ROXANE LABORATORIES, INC.-2012-RO-01856RO

PATIENT
  Age: 49 Year
  Sex: Male

DRUGS (8)
  1. ZOLPIDEM [Suspect]
     Indication: BIPOLAR DISORDER
     Dosage: 10 mg
  2. ZOLPIDEM [Suspect]
     Indication: ANXIETY
  3. CLOPIDOGREL [Concomitant]
     Indication: HYPERTENSION
     Dosage: 75 mg
  4. CARVEDILOL [Concomitant]
     Indication: HYPERTENSION
     Dosage: 25 mg
  5. LAMOTRIGINE [Concomitant]
     Indication: BIPOLAR DISORDER
     Dosage: 200 mg
  6. LAMOTRIGINE [Concomitant]
     Indication: ANXIETY
  7. CLONAZEPAM [Concomitant]
     Indication: BIPOLAR DISORDER
     Dosage: 2.5 mg
  8. CLONAZEPAM [Concomitant]
     Indication: ANXIETY

REACTIONS (2)
  - Sleep-related eating disorder [Recovered/Resolved]
  - Weight increased [Unknown]
